FAERS Safety Report 8278519-5 (Version None)
Quarter: 2012Q2

REPORT INFORMATION
  Report Type: 
  Country: None (occurrence: None)
  Receive Date: 20120412
  Receipt Date: 20110510
  Transmission Date: 20120825
  Serious: No
  Sender: FDA-Public Use
  Company Number: US-ASTRAZENECA-2011SE28805

PATIENT
  Age: 61 Year
  Sex: Female

DRUGS (2)
  1. PRILOSEC [Concomitant]
  2. NEXIUM [Suspect]
     Route: 048

REACTIONS (9)
  - TOOTH DISORDER [None]
  - DYSPEPSIA [None]
  - HIATUS HERNIA [None]
  - OROPHARYNGEAL PAIN [None]
  - CHEST PAIN [None]
  - DRUG DOSE OMISSION [None]
  - MALAISE [None]
  - GASTROOESOPHAGEAL REFLUX DISEASE [None]
  - NASAL CAVITY CANCER [None]
